FAERS Safety Report 23430298 (Version 3)
Quarter: 2024Q1

REPORT INFORMATION
  Report Type: Spontaneous
  Country: PK (occurrence: PK)
  Receive Date: 20240123
  Receipt Date: 20240202
  Transmission Date: 20240409
  Serious: Yes (Other)
  Sender: FDA-Public Use
  Company Number: PK-PFIZER INC-2020265003

PATIENT
  Age: 52 Year
  Sex: Female
  Weight: 72 kg

DRUGS (16)
  1. ENBREL [Suspect]
     Active Substance: ETANERCEPT
     Indication: Rheumatoid arthritis
     Dosage: UNK UNK, Q3MO
     Route: 065
  2. ENBREL [Suspect]
     Active Substance: ETANERCEPT
     Indication: Osteoarthritis
     Dosage: UNK, 2 TIMES/WK
     Route: 058
  3. ENBREL [Suspect]
     Active Substance: ETANERCEPT
     Dosage: 50 MILLIGRAM, QWK
     Route: 058
  4. ENBREL [Suspect]
     Active Substance: ETANERCEPT
     Dosage: 50 MILLIGRAM, Q2WK
     Route: 058
  5. ENBREL [Suspect]
     Active Substance: ETANERCEPT
     Dosage: 50 MG, WEEKLY (EVERY WEEK FOR 3 MONTHS)
     Route: 058
     Dates: start: 20211204
  6. ENBREL [Suspect]
     Active Substance: ETANERCEPT
     Dosage: UNK UNK, EVERY 15 DAYS
     Route: 065
  7. ENBREL [Suspect]
     Active Substance: ETANERCEPT
     Dosage: 50 MILLIGRAM, QWK
     Route: 058
  8. DEPO-MEDROL [Concomitant]
     Active Substance: METHYLPREDNISOLONE ACETATE
     Dosage: 80 MILLIGRAM, QWK
     Dates: start: 20201230
  9. METHOTREXATE SODIUM [Concomitant]
     Active Substance: METHOTREXATE SODIUM
     Dosage: UNK, QWK 4CC
  10. FOLIC ACID [Concomitant]
     Active Substance: FOLIC ACID
     Dosage: 5 MG, WEEKLY(SUNDAY)
  11. Krotam [Concomitant]
     Dosage: UNK, 1 MONTH
  12. TRAMAL PLUS [Concomitant]
     Dosage: UNK
  13. OSNATE D [Concomitant]
     Dosage: UNK
  14. Trexol [Concomitant]
     Dosage: 50MG/2ML VIA 404 INSULIN SYRINGE ON FRIDAY
  15. Flexin [Concomitant]
     Dosage: 500 MG, 1+1 FOR 10 DAYS THEN AS PER NEED
  16. CAPCIDOL [Concomitant]
     Dosage: MORNING AND EVENING

REACTIONS (10)
  - Polyarthritis [Unknown]
  - Blood pressure increased [Unknown]
  - Joint swelling [Unknown]
  - Joint stiffness [Unknown]
  - Wrist deformity [Unknown]
  - Joint noise [Unknown]
  - Off label use [Unknown]
  - Rheumatoid arthritis [Unknown]
  - Arthralgia [Unknown]
  - Pyrexia [Unknown]
